FAERS Safety Report 7814735-1 (Version None)
Quarter: 2011Q4

REPORT INFORMATION
  Report Type: 
  Country: None (occurrence: None)
  Receive Date: 20111014
  Receipt Date: 20111012
  Transmission Date: 20120403
  Serious: Yes (Death, Hospitalization)
  Sender: FDA-Public Use
  Company Number: AU-B.I. PHARMACEUTICALS,INC./RIDGEFIELD-2011-AU-01145AU

PATIENT
  Sex: Male
  Weight: 82 kg

DRUGS (20)
  1. ATACAND [Concomitant]
     Dosage: 8 MG
  2. FUNGILIN [Concomitant]
     Dosage: 40 MG
  3. METOPROLOL TARTRATE [Concomitant]
     Dosage: 75 MG
  4. VENTOLIN [Concomitant]
  5. FUROSEMIDE [Concomitant]
     Dosage: 60 MG
  6. JANUMET [Concomitant]
     Dosage: 50MG;500MG
  7. METFORMIN HYDROCHLORIDE [Concomitant]
     Dosage: 500 MG
  8. PRAVACHOL [Concomitant]
     Dosage: 10 MG
  9. PRADAXA [Suspect]
     Indication: CEREBROVASCULAR ACCIDENT PROPHYLAXIS
     Dosage: 220 MG
     Dates: start: 20110725
  10. DIGOXIN [Concomitant]
     Dosage: 62.5 MCG
  11. COSOPT [Concomitant]
     Dosage: 2%;0.5%
  12. ISORDIL [Concomitant]
     Dosage: 5 MG
  13. XALATAN [Concomitant]
     Dosage: 50MCG/ML
  14. PRADAXA [Suspect]
     Indication: ATRIAL FIBRILLATION
  15. SPIRIVA [Suspect]
     Dosage: 18 MCG
  16. MAXEPA FISH OIL EXTRACT [Concomitant]
     Dosage: 1000 MG
  17. PANAMAX [Concomitant]
  18. TRANSDERM-NITRO [Concomitant]
     Dosage: 25 MG
  19. LANSOPRAZOLE [Concomitant]
     Dosage: 30 MG
  20. IKOREL [Concomitant]
     Dosage: 40 MG

REACTIONS (6)
  - COUGH [None]
  - PNEUMONIA [None]
  - UPPER RESPIRATORY TRACT INFECTION [None]
  - DYSPNOEA [None]
  - RESPIRATORY FAILURE [None]
  - PYREXIA [None]
